FAERS Safety Report 7527013-5 (Version None)
Quarter: 2011Q2

REPORT INFORMATION
  Report Type: 
  Country: None (occurrence: None)
  Receive Date: 20110606
  Receipt Date: 20100308
  Transmission Date: 20111010
  Serious: No
  Sender: FDA-Public Use
  Company Number: US-BAYER-201016252NA

PATIENT
  Sex: Female
  Weight: 72.562 kg

DRUGS (2)
  1. TYLENOL SINUS MEDICATION [Concomitant]
  2. AVELOX [Suspect]
     Indication: SINUSITIS
     Dosage: UNK
     Route: 048
     Dates: start: 20100308

REACTIONS (1)
  - PRURITUS [None]
